FAERS Safety Report 19085754 (Version 1)
Quarter: 2021Q2

REPORT INFORMATION
  Report Type: Report from Study
  Country: US (occurrence: US)
  Receive Date: 20210402
  Receipt Date: 20210402
  Transmission Date: 20210717
  Serious: No
  Sender: FDA-Public Use
  Company Number: US-ACADIA PHARMACEUTICALS INC.-ACA-2021-PIM-000986

PATIENT
  Sex: Female

DRUGS (8)
  1. CLOZAPINE. [Concomitant]
     Active Substance: CLOZAPINE
  2. VITAMIN B12 [VITAMIN B12 NOS] [Concomitant]
     Active Substance: CYANOCOBALAMIN
  3. FOLIC ACID. [Concomitant]
     Active Substance: FOLIC ACID
  4. MAGNESIUM [Concomitant]
     Active Substance: MAGNESIUM
  5. TURMERIC [CURCUMA LONGA RHIZOME] [Concomitant]
     Active Substance: HERBALS\TURMERIC
  6. NUPLAZID [Suspect]
     Active Substance: PIMAVANSERIN TARTRATE
     Indication: PARKINSON^S DISEASE
     Dosage: 34 MILLIGRAM, QD
     Route: 048
     Dates: start: 201803
  7. DUOPA [Concomitant]
     Active Substance: CARBIDOPA\LEVODOPA
  8. MYRBETRIQ [Concomitant]
     Active Substance: MIRABEGRON

REACTIONS (1)
  - Abnormal behaviour [Unknown]
